FAERS Safety Report 8548844 (Version 2)
Quarter: 2016Q1

REPORT INFORMATION
  Report Type: Spontaneous
  Country: US (occurrence: US)
  Receive Date: 20120507
  Receipt Date: 20160210
  Transmission Date: 20160526
  Serious: Yes (Other)
  Sender: FDA-Public Use
  Company Number: US-SANOFI-AVENTIS-2012SA029336

PATIENT
  Age: 71 Year
  Sex: Male

DRUGS (3)
  1. MULTAQ [Suspect]
     Active Substance: DRONEDARONE
     Indication: ATRIAL FIBRILLATION
     Route: 048
     Dates: start: 201010
  2. XARELTO [Concomitant]
     Active Substance: RIVAROXABAN
  3. CHLORPHENIRAMINE. [Concomitant]
     Active Substance: CHLORPHENIRAMINE

REACTIONS (2)
  - Atrial fibrillation [Recovered/Resolved]
  - Diverticulum [Not Recovered/Not Resolved]
